FAERS Safety Report 7134639-X (Version None)
Quarter: 2010Q4

REPORT INFORMATION
  Report Type: 
  Country: None (occurrence: None)
  Receive Date: 20101130
  Receipt Date: 20101130
  Transmission Date: 20110411
  Serious: Yes (Death)
  Sender: FDA-Public Use
  Company Number: None

PATIENT
  Age: 45 Year
  Sex: Male
  Weight: 140.6151 kg

DRUGS (3)
  1. SEROQUEL [Suspect]
     Dosage: 400MG QD PO
     Route: 048
     Dates: start: 20100823, end: 20100827
  2. KLONOPIN [Concomitant]
  3. PAIN MEDICATION -UNSURE OF NAME- [Concomitant]

REACTIONS (2)
  - COGNITIVE DISORDER [None]
  - DYSARTHRIA [None]
